FAERS Safety Report 7996559-8 (Version None)
Quarter: 2011Q4

REPORT INFORMATION
  Report Type: 
  Country: None (occurrence: None)
  Receive Date: 20111221
  Receipt Date: 20111212
  Transmission Date: 20120403
  Serious: Yes (Hospitalization)
  Sender: FDA-Public Use
  Company Number: US-BIOGENIDEC-2011BI047380

PATIENT
  Age: 67 Year
  Sex: Female

DRUGS (2)
  1. TYSABRI [Suspect]
     Indication: MULTIPLE SCLEROSIS
     Route: 042
     Dates: start: 20070503
  2. TYSABRI [Suspect]
     Route: 042
     Dates: start: 20050201, end: 20050201

REACTIONS (6)
  - CONFUSIONAL STATE [None]
  - DRY MOUTH [None]
  - PARALYSIS [None]
  - EYELID OEDEMA [None]
  - SWELLING FACE [None]
  - BLOOD BLISTER [None]
